FAERS Safety Report 8833147 (Version 2)
Quarter: 2012Q4

REPORT INFORMATION
  Report Type: Report from Study
  Country: TW (occurrence: TW)
  Receive Date: 20121010
  Receipt Date: 20121012
  Transmission Date: 20130627
  Serious: Yes (Death)
  Sender: FDA-Public Use
  Company Number: PHHY2012TW089043

PATIENT
  Age: 87 Year
  Sex: Female
  Weight: 40 kg

DRUGS (1)
  1. ACLASTA/ZOLEDRONATE [Suspect]
     Indication: OSTEOPOROTIC FRACTURE
     Dosage: 5 mg
     Route: 042
     Dates: start: 20120928, end: 20120928

REACTIONS (1)
  - Death [Fatal]
